FAERS Safety Report 15571198 (Version 9)
Quarter: 2019Q3

REPORT INFORMATION
  Report Type: Report from Study
  Country: JP (occurrence: JP)
  Receive Date: 20181031
  Receipt Date: 20190702
  Transmission Date: 20191004
  Serious: Yes (Other)
  Sender: FDA-Public Use
  Company Number: JP-BEH-2018096194

PATIENT
  Age: 13 Year
  Sex: Male
  Weight: 52 kg

DRUGS (66)
  1. IDELVION [Suspect]
     Active Substance: COAGULATION FACTOR IX RECOMBINANT HUMAN
     Indication: FACTOR IX DEFICIENCY
     Dosage: 2000 INTERNATIONAL UNIT, DAILY
     Route: 042
     Dates: start: 20180727, end: 20180727
  2. IDELVION [Suspect]
     Active Substance: COAGULATION FACTOR IX RECOMBINANT HUMAN
     Indication: HAEMOSTASIS
     Dosage: 500 INTERNATIONAL UNIT, DAILY
     Route: 042
     Dates: start: 20180727, end: 20180727
  3. IDELVION [Suspect]
     Active Substance: COAGULATION FACTOR IX RECOMBINANT HUMAN
     Indication: PROPHYLAXIS
     Dosage: 2500 INTERNATIONAL UNIT, 6 DAYS
     Route: 042
     Dates: start: 20180920, end: 20180926
  4. IDELVION [Suspect]
     Active Substance: COAGULATION FACTOR IX RECOMBINANT HUMAN
     Dosage: 2000 INTERNATIONAL UNIT, 1 WEEK
     Route: 042
     Dates: start: 20181029, end: 20181029
  5. IDELVION [Suspect]
     Active Substance: COAGULATION FACTOR IX RECOMBINANT HUMAN
     Dosage: 500 INTERNATIONAL UNIT, 1 DAY
     Route: 042
     Dates: start: 20181102, end: 20181102
  6. IDELVION [Suspect]
     Active Substance: COAGULATION FACTOR IX RECOMBINANT HUMAN
     Dosage: 2000 INTERNATIONAL UNIT, 1 DAY
     Route: 042
     Dates: start: 20181109, end: 20181109
  7. IDELVION [Suspect]
     Active Substance: COAGULATION FACTOR IX RECOMBINANT HUMAN
     Dosage: 2500 INTERNATIONAL UNIT, 1 DAY
     Route: 042
     Dates: start: 20181114, end: 20181114
  8. IDELVION [Suspect]
     Active Substance: COAGULATION FACTOR IX RECOMBINANT HUMAN
     Dosage: 2500 INTERNATIONAL UNIT, 1 DAY
     Route: 042
     Dates: start: 20181114, end: 20181114
  9. IDELVION [Suspect]
     Active Substance: COAGULATION FACTOR IX RECOMBINANT HUMAN
     Dosage: 2500 INTERNATIONAL UNIT, 1 WEEK
     Route: 042
     Dates: start: 20181123, end: 20181123
  10. IDELVION [Suspect]
     Active Substance: COAGULATION FACTOR IX RECOMBINANT HUMAN
     Dosage: 2500 INTERNATIONAL UNIT, 1 WEEK
     Route: 042
     Dates: start: 20181123, end: 20181123
  11. IDELVION [Suspect]
     Active Substance: COAGULATION FACTOR IX RECOMBINANT HUMAN
     Dosage: 2500 INTERNATIONAL UNIT, 1 DAY
     Route: 042
     Dates: start: 20181213, end: 20181213
  12. IDELVION [Suspect]
     Active Substance: COAGULATION FACTOR IX RECOMBINANT HUMAN
     Dosage: 2000 INTERNATIONAL UNIT, 1 DAY
     Route: 042
     Dates: start: 20181231, end: 20181231
  13. IDELVION [Suspect]
     Active Substance: COAGULATION FACTOR IX RECOMBINANT HUMAN
     Dosage: 500 INTERNATIONAL UNIT, 1 DAY
     Route: 042
     Dates: start: 20190118, end: 20190118
  14. IDELVION [Suspect]
     Active Substance: COAGULATION FACTOR IX RECOMBINANT HUMAN
     Dosage: 4000 INTERNATIONAL UNIT, 1 DAY
     Route: 042
     Dates: start: 20190125, end: 20190125
  15. IDELVION [Suspect]
     Active Substance: COAGULATION FACTOR IX RECOMBINANT HUMAN
     Dosage: 500 INTERNATIONAL UNIT, 1 DAY
     Route: 042
     Dates: start: 20181022, end: 20181022
  16. IDELVION [Suspect]
     Active Substance: COAGULATION FACTOR IX RECOMBINANT HUMAN
     Dosage: 2500 INTERNATIONAL UNIT, 1 DAY
     Route: 042
     Dates: start: 20181205, end: 20181205
  17. IDELVION [Suspect]
     Active Substance: COAGULATION FACTOR IX RECOMBINANT HUMAN
     Dosage: 500 INTERNATIONAL UNIT, 1 DAY
     Route: 042
     Dates: start: 20181220, end: 20181220
  18. IDELVION [Suspect]
     Active Substance: COAGULATION FACTOR IX RECOMBINANT HUMAN
     Dosage: 2500 INTERNATIONAL UNIT, 1 DAY
     Route: 042
     Dates: start: 20190109, end: 20190109
  19. IDELVION [Suspect]
     Active Substance: COAGULATION FACTOR IX RECOMBINANT HUMAN
     Dosage: 3000 INTERNATIONAL UNIT, 1 DAY
     Route: 042
     Dates: start: 20181002, end: 20181002
  20. IDELVION [Suspect]
     Active Substance: COAGULATION FACTOR IX RECOMBINANT HUMAN
     Dosage: 500 INTERNATIONAL UNIT, 1 DAY
     Route: 042
     Dates: start: 20181130, end: 20181130
  21. IDELVION [Suspect]
     Active Substance: COAGULATION FACTOR IX RECOMBINANT HUMAN
     Dosage: 2500 IU, 1 DAY
     Route: 042
     Dates: start: 20181025, end: 20181025
  22. IDELVION [Suspect]
     Active Substance: COAGULATION FACTOR IX RECOMBINANT HUMAN
     Dosage: 2000 INTERNATIONAL UNIT, 1 DAY
     Route: 042
     Dates: start: 20181109, end: 20181109
  23. IDELVION [Suspect]
     Active Substance: COAGULATION FACTOR IX RECOMBINANT HUMAN
     Dosage: 500 INTERNATIONAL UNIT, 1 DAY
     Route: 042
     Dates: start: 20181109, end: 20181109
  24. IDELVION [Suspect]
     Active Substance: COAGULATION FACTOR IX RECOMBINANT HUMAN
     Dosage: 2500 INTERNATIONAL UNIT, 1 DAY
     Route: 042
     Dates: start: 20181226, end: 20181226
  25. IDELVION [Suspect]
     Active Substance: COAGULATION FACTOR IX RECOMBINANT HUMAN
     Dosage: 2500 INTERNATIONAL UNIT, 1 DAY
     Route: 042
     Dates: start: 20190109, end: 20190109
  26. IDELVION [Suspect]
     Active Substance: COAGULATION FACTOR IX RECOMBINANT HUMAN
     Dosage: 2000 INTERNATIONAL UNIT, 1 DAY
     Route: 042
     Dates: start: 20181022, end: 20181022
  27. NOVACT M FUJISAWA [Concomitant]
     Dosage: AVERAGE DOSE 1658IU 1613 TIMES
     Route: 065
     Dates: start: 20060129, end: 20181019
  28. IDELVION [Suspect]
     Active Substance: COAGULATION FACTOR IX RECOMBINANT HUMAN
     Indication: HAEMOSTASIS
     Dosage: 500 INTERNATIONAL UNIT, DAILY
     Route: 042
     Dates: start: 20180727, end: 20180727
  29. IDELVION [Suspect]
     Active Substance: COAGULATION FACTOR IX RECOMBINANT HUMAN
     Dosage: 500 INTERNATIONAL UNIT, 1 WEEK
     Route: 042
     Dates: start: 20181029, end: 20181029
  30. IDELVION [Suspect]
     Active Substance: COAGULATION FACTOR IX RECOMBINANT HUMAN
     Dosage: 2000 INTERNATIONAL UNIT, 1 DAY
     Route: 042
     Dates: start: 20181102, end: 20181102
  31. IDELVION [Suspect]
     Active Substance: COAGULATION FACTOR IX RECOMBINANT HUMAN
     Dosage: 2500 INTERNATIONAL UNIT, 1 DAY
     Route: 042
     Dates: start: 20181226, end: 20181226
  32. IDELVION [Suspect]
     Active Substance: COAGULATION FACTOR IX RECOMBINANT HUMAN
     Dosage: 2500 INTERNATIONAL UNIT, 1 DAY
     Route: 042
     Dates: start: 20190112, end: 20190112
  33. IDELVION [Suspect]
     Active Substance: COAGULATION FACTOR IX RECOMBINANT HUMAN
     Dosage: 4000 INTERNATIONAL UNIT, 1 DAY
     Route: 042
     Dates: start: 20190125, end: 20190125
  34. IDELVION [Suspect]
     Active Substance: COAGULATION FACTOR IX RECOMBINANT HUMAN
     Dosage: 3000 INTERNATIONAL UNIT, 1 DAY
     Route: 042
     Dates: start: 20181002, end: 20181002
  35. IDELVION [Suspect]
     Active Substance: COAGULATION FACTOR IX RECOMBINANT HUMAN
     Dosage: 500 INTERNATIONAL UNIT, 1 DAY
     Route: 042
     Dates: start: 20181022, end: 20181022
  36. IDELVION [Suspect]
     Active Substance: COAGULATION FACTOR IX RECOMBINANT HUMAN
     Dosage: 2000 INTERNATIONAL UNIT, 1 DAY
     Route: 042
     Dates: start: 20181130, end: 20181130
  37. IDELVION [Suspect]
     Active Substance: COAGULATION FACTOR IX RECOMBINANT HUMAN
     Dosage: 500 INTERNATIONAL UNIT, 1 DAY
     Route: 042
     Dates: start: 20181130, end: 20181130
  38. IDELVION [Suspect]
     Active Substance: COAGULATION FACTOR IX RECOMBINANT HUMAN
     Dosage: 500 INTERNATIONAL UNIT, 1 WEEK
     Route: 042
     Dates: start: 20181029, end: 20181029
  39. IDELVION [Suspect]
     Active Substance: COAGULATION FACTOR IX RECOMBINANT HUMAN
     Dosage: 2500 IU, 1 DAY
     Route: 042
     Dates: start: 20181025, end: 20181025
  40. IDELVION [Suspect]
     Active Substance: COAGULATION FACTOR IX RECOMBINANT HUMAN
     Dosage: 2500 INTERNATIONAL UNIT, 1 DAY
     Route: 042
     Dates: start: 20181205, end: 20181205
  41. IDELVION [Suspect]
     Active Substance: COAGULATION FACTOR IX RECOMBINANT HUMAN
     Dosage: 2000 INTERNATIONAL UNIT, 1 DAY
     Route: 042
     Dates: start: 20181022, end: 20181022
  42. IDELVION [Suspect]
     Active Substance: COAGULATION FACTOR IX RECOMBINANT HUMAN
     Dosage: UNK
     Route: 042
     Dates: start: 20190125, end: 20190125
  43. IDELVION [Suspect]
     Active Substance: COAGULATION FACTOR IX RECOMBINANT HUMAN
     Indication: PROPHYLAXIS
     Dosage: 2500 INTERNATIONAL UNIT, 6 DAYS
     Route: 042
     Dates: start: 20180920, end: 20180926
  44. IDELVION [Suspect]
     Active Substance: COAGULATION FACTOR IX RECOMBINANT HUMAN
     Dosage: 2000 INTERNATIONAL UNIT, 1 DAY
     Route: 042
     Dates: start: 20181102, end: 20181102
  45. IDELVION [Suspect]
     Active Substance: COAGULATION FACTOR IX RECOMBINANT HUMAN
     Dosage: 500 INTERNATIONAL UNIT, 1 DAY
     Route: 042
     Dates: start: 20181102, end: 20181102
  46. IDELVION [Suspect]
     Active Substance: COAGULATION FACTOR IX RECOMBINANT HUMAN
     Dosage: 500 INTERNATIONAL UNIT, 1 DAY
     Route: 042
     Dates: start: 20181109, end: 20181109
  47. IDELVION [Suspect]
     Active Substance: COAGULATION FACTOR IX RECOMBINANT HUMAN
     Dosage: 500 INTERNATIONAL UNIT, 1 DAY
     Route: 042
     Dates: start: 20181220, end: 20181220
  48. IDELVION [Suspect]
     Active Substance: COAGULATION FACTOR IX RECOMBINANT HUMAN
     Dosage: 2000 INTERNATIONAL UNIT, 1 DAY
     Route: 042
     Dates: start: 20181231, end: 20181231
  49. IDELVION [Suspect]
     Active Substance: COAGULATION FACTOR IX RECOMBINANT HUMAN
     Dosage: 500 INTERNATIONAL UNIT, 1 DAY
     Dates: start: 20181231, end: 20181231
  50. IDELVION [Suspect]
     Active Substance: COAGULATION FACTOR IX RECOMBINANT HUMAN
     Dosage: 500 INTERNATIONAL UNIT, 1 DAY
     Dates: start: 20181231, end: 20181231
  51. IDELVION [Suspect]
     Active Substance: COAGULATION FACTOR IX RECOMBINANT HUMAN
     Dosage: 2500 INTERNATIONAL UNIT, 1 DAY
     Route: 042
     Dates: start: 20190112, end: 20190112
  52. IDELVION [Suspect]
     Active Substance: COAGULATION FACTOR IX RECOMBINANT HUMAN
     Dosage: UNK
     Route: 042
     Dates: start: 20190125, end: 20190125
  53. IDELVION [Suspect]
     Active Substance: COAGULATION FACTOR IX RECOMBINANT HUMAN
     Dosage: 2000 INTERNATIONAL UNIT, 1 WEEK
     Route: 042
     Dates: start: 20181029, end: 20181029
  54. IDELVION [Suspect]
     Active Substance: COAGULATION FACTOR IX RECOMBINANT HUMAN
     Dosage: 2000 INTERNATIONAL UNIT, 1 DAY
     Route: 042
     Dates: start: 20190118, end: 20190118
  55. IDELVION [Suspect]
     Active Substance: COAGULATION FACTOR IX RECOMBINANT HUMAN
     Dosage: 2000 INTERNATIONAL UNIT, 1 DAY
     Route: 042
     Dates: start: 20190118, end: 20190118
  56. IDELVION [Suspect]
     Active Substance: COAGULATION FACTOR IX RECOMBINANT HUMAN
     Dosage: 2500 INTERNATIONAL UNIT, 1 DAY
     Route: 042
     Dates: start: 20190119, end: 20190119
  57. IDELVION [Suspect]
     Active Substance: COAGULATION FACTOR IX RECOMBINANT HUMAN
     Dosage: 2500 INTERNATIONAL UNIT, 1 DAY
     Route: 042
     Dates: start: 20190119, end: 20190119
  58. IDELVION [Suspect]
     Active Substance: COAGULATION FACTOR IX RECOMBINANT HUMAN
     Dosage: 2000 INTERNATIONAL UNIT, 1 DAY
     Route: 042
     Dates: start: 20181130, end: 20181130
  59. NOVACT M FUJISAWA [Concomitant]
     Dosage: 2500 INTERNATIONAL UNIT, THREE TIMES A WEEK
     Route: 065
     Dates: start: 20180806, end: 20180914
  60. IDELVION [Suspect]
     Active Substance: COAGULATION FACTOR IX RECOMBINANT HUMAN
     Indication: FACTOR IX DEFICIENCY
     Dosage: 2000 INTERNATIONAL UNIT, DAILY
     Route: 042
     Dates: start: 20180727, end: 20180727
  61. IDELVION [Suspect]
     Active Substance: COAGULATION FACTOR IX RECOMBINANT HUMAN
     Dosage: 2500 INTERNATIONAL UNIT, 1 DAY
     Route: 042
     Dates: start: 20181213, end: 20181213
  62. IDELVION [Suspect]
     Active Substance: COAGULATION FACTOR IX RECOMBINANT HUMAN
     Dosage: 2000 INTERNATIONAL UNIT, 1 DAY
     Route: 042
     Dates: start: 20181220, end: 20181220
  63. IDELVION [Suspect]
     Active Substance: COAGULATION FACTOR IX RECOMBINANT HUMAN
     Dosage: 2000 INTERNATIONAL UNIT, 1 DAY
     Route: 042
     Dates: start: 20181220, end: 20181220
  64. IDELVION [Suspect]
     Active Substance: COAGULATION FACTOR IX RECOMBINANT HUMAN
     Dosage: 500 INTERNATIONAL UNIT, 1 DAY
     Route: 042
     Dates: start: 20190118, end: 20190118
  65. NOVACT M FUJISAWA [Concomitant]
     Dosage: 2500 INTERNATIONAL UNIT, 2 DAYS
     Route: 065
     Dates: start: 20180802, end: 20180804
  66. NOVACT M FUJISAWA [Concomitant]
     Dosage: 2500 INTERNATIONAL UNIT, 1 DAY
     Route: 065
     Dates: start: 20180917, end: 20180917

REACTIONS (10)
  - Drug ineffective [Recovering/Resolving]
  - Pain in extremity [Unknown]
  - Joint swelling [Unknown]
  - Swelling [Unknown]
  - Peripheral swelling [Unknown]
  - Arthralgia [Unknown]
  - Haemorrhage subcutaneous [Unknown]
  - Arthralgia [Unknown]
  - Pain in extremity [Unknown]
  - Nail bed bleeding [Unknown]

NARRATIVE: CASE EVENT DATE: 20180730
